FAERS Safety Report 23078551 (Version 1)
Quarter: 2023Q4

REPORT INFORMATION
  Report Type: Report from Study
  Country: CN (occurrence: CN)
  Receive Date: 20231018
  Receipt Date: 20231018
  Transmission Date: 20240109
  Serious: Yes (Other)
  Sender: FDA-Public Use
  Company Number: CN-GILEAD-2023-0647262

PATIENT

DRUGS (1)
  1. TENOFOVIR ALAFENAMIDE [Suspect]
     Active Substance: TENOFOVIR ALAFENAMIDE
     Indication: Chronic hepatitis B
     Dosage: UNK
     Route: 065

REACTIONS (1)
  - Chronic sinusitis [Unknown]
